FAERS Safety Report 6177616-8 (Version None)
Quarter: 2009Q2

REPORT INFORMATION
  Report Type: 
  Country: None (occurrence: None)
  Receive Date: 20090504
  Receipt Date: 20090114
  Transmission Date: 20091009
  Serious: No
  Sender: FDA-Public Use
  Company Number: US-ALEXION-A200800402

PATIENT
  Sex: Female

DRUGS (6)
  1. SOLIRIS [Suspect]
     Indication: PAROXYSMAL NOCTURNAL HAEMOGLOBINURIA
     Dosage: 600 MG, QWK
     Route: 042
     Dates: start: 20080910, end: 20081001
  2. SOLIRIS [Suspect]
     Dosage: 900 MG, Q2WK
     Route: 042
     Dates: start: 20081008
  3. FOLIC ACID [Concomitant]
     Dosage: UNK
     Route: 048
  4. PROCHLORPERAZINE [Concomitant]
     Dosage: UNK
     Route: 048
  5. FERROUS SULFATE TAB [Concomitant]
     Dosage: UNK
     Route: 048
  6. LAMICTAL [Concomitant]
     Dosage: UNK
     Route: 048

REACTIONS (3)
  - BLOOD PRESSURE INCREASED [None]
  - FATIGUE [None]
  - SINUSITIS [None]
